FAERS Safety Report 8904636 (Version 6)
Quarter: 2013Q2

REPORT INFORMATION
  Report Type: Spontaneous
  Country: US (occurrence: US)
  Receive Date: 20121112
  Receipt Date: 20130522
  Transmission Date: 20140414
  Serious: Yes (Death, Hospitalization, Other)
  Sender: FDA-Public Use
  Company Number: US-009507513-1211USA004406

PATIENT
  Sex: Female

DRUGS (4)
  1. FOSAMAX [Suspect]
     Indication: OSTEOPOROSIS
     Dosage: 70 MG, UNK
     Route: 048
     Dates: start: 1996, end: 2011
  2. FOSAMAX [Suspect]
     Dosage: 35 UNK, UNK
     Route: 048
  3. ALENDRONATE SODIUM [Suspect]
     Indication: OSTEOPOROSIS
     Dosage: 70 MG, UNK
     Route: 048
  4. VITAMINS (UNSPECIFIED) [Concomitant]
     Indication: OSTEOPOROSIS
     Dosage: UNK, QD
     Route: 048
     Dates: start: 1960

REACTIONS (44)
  - Hip fracture [Recovered/Resolved]
  - Femur fracture [Recovered/Resolved]
  - Open reduction of fracture [Recovered/Resolved]
  - Fall [Recovered/Resolved]
  - Cardiac failure congestive [Not Recovered/Not Resolved]
  - Myocardial infarction [Unknown]
  - Urinary tract infection [Unknown]
  - Arthritis [Unknown]
  - Pulmonary oedema [Unknown]
  - Deep vein thrombosis [Not Recovered/Not Resolved]
  - Thrombocytopenia [Unknown]
  - Haemorrhagic anaemia [Unknown]
  - Parkinson^s disease [Unknown]
  - Atelectasis [Unknown]
  - Syncope [Unknown]
  - Heat stroke [Unknown]
  - Urinary tract infection [Unknown]
  - Hypertension [Unknown]
  - Fluid overload [Unknown]
  - Mitral valve incompetence [Not Recovered/Not Resolved]
  - Tremor [Unknown]
  - Renal failure chronic [Not Recovered/Not Resolved]
  - Skin neoplasm excision [Unknown]
  - Basal cell carcinoma [Unknown]
  - Pulmonary embolism [Unknown]
  - Toxicity to various agents [Unknown]
  - Pulmonary hypertension [Unknown]
  - Convulsion [Unknown]
  - Lung disorder [Unknown]
  - Cardiac failure congestive [Fatal]
  - Arteriosclerosis [Unknown]
  - Fall [Unknown]
  - Osteopenia [Unknown]
  - Spinal deformity [Unknown]
  - Spinal osteoarthritis [Unknown]
  - Hypothyroidism [Not Recovered/Not Resolved]
  - Urinary incontinence [Unknown]
  - Anxiety [Unknown]
  - Depression [Unknown]
  - Pubis fracture [Unknown]
  - Nerve compression [Unknown]
  - Coronary artery disease [Unknown]
  - Migraine [Unknown]
  - Lip oedema [Unknown]
